FAERS Safety Report 17478590 (Version 1)
Quarter: 2020Q1

REPORT INFORMATION
  Report Type: Spontaneous
  Country: FR (occurrence: FR)
  Receive Date: 20200228
  Receipt Date: 20200228
  Transmission Date: 20200409
  Serious: Yes (Life-Threatening)
  Sender: FDA-Public Use
  Company Number: FR-MYLANLABS-2020M1021764

PATIENT
  Age: 47 Year
  Sex: Male
  Weight: 70 kg

DRUGS (6)
  1. NORADRENALINE MYLAN [Suspect]
     Active Substance: NOREPINEPHRINE\NOREPINEPHRINE BITARTRATE
     Indication: PROPHYLAXIS OF NAUSEA AND VOMITING
     Dosage: 4 MILLIGRAM, TOTAL
     Route: 040
     Dates: start: 20190627, end: 20190627
  2. CEFAZOLINE                         /00288501/ [Concomitant]
     Active Substance: CEFAZOLIN
  3. NAROPEINE [Concomitant]
     Active Substance: ROPIVACAINE HYDROCHLORIDE
  4. PROPOFOL. [Concomitant]
     Active Substance: PROPOFOL
  5. NIMBEX [Concomitant]
     Active Substance: CISATRACURIUM BESYLATE
  6. SUFENTANIL [Concomitant]
     Active Substance: SUFENTANIL

REACTIONS (2)
  - Myocardial stunning [Recovered/Resolved]
  - Product administration error [Recovered/Resolved]

NARRATIVE: CASE EVENT DATE: 20190627
